FAERS Safety Report 18658129 (Version 1)
Quarter: 2020Q4

REPORT INFORMATION
  Report Type: Spontaneous
  Country: US (occurrence: US)
  Receive Date: 20201224
  Receipt Date: 20201224
  Transmission Date: 20210114
  Serious: Yes (Hospitalization, Other)
  Sender: FDA-Public Use
  Company Number: US-MICRO LABS LIMITED-ML2020-03809

PATIENT
  Age: 17 Year
  Sex: Female

DRUGS (17)
  1. HALOPERIDOL. [Concomitant]
     Active Substance: HALOPERIDOL
     Route: 030
  2. DIVALPROEX [Concomitant]
     Active Substance: DIVALPROEX SODIUM
  3. DIPHENHYDRAMINE HYDROCHLORIDE. [Suspect]
     Active Substance: DIPHENHYDRAMINE HYDROCHLORIDE
     Indication: EXTRAPYRAMIDAL DISORDER
     Route: 030
  4. RISPERIDONE. [Suspect]
     Active Substance: RISPERIDONE
  5. RISPERIDONE. [Suspect]
     Active Substance: RISPERIDONE
     Dosage: 3 MG DAILY AND 4 MG AT BEDTIME
  6. LURASIDONE [Concomitant]
     Active Substance: LURASIDONE
     Indication: PSYCHOTIC SYMPTOM
  7. RISPERIDONE. [Suspect]
     Active Substance: RISPERIDONE
  8. CLONIDINE. [Concomitant]
     Active Substance: CLONIDINE
     Indication: AGGRESSION
  9. BENZOTROPINE [Concomitant]
     Active Substance: BENZTROPINE
     Indication: EXTRAPYRAMIDAL DISORDER
  10. RISPERIDONE. [Suspect]
     Active Substance: RISPERIDONE
     Indication: PSYCHOTIC SYMPTOM
  11. SERTRALINE [Concomitant]
     Active Substance: SERTRALINE HYDROCHLORIDE
     Indication: DEPRESSIVE SYMPTOM
  12. DIPHENHYDRAMINE HYDROCHLORIDE. [Suspect]
     Active Substance: DIPHENHYDRAMINE HYDROCHLORIDE
     Dosage: 25 MG DAILY AND 50 MG AT BEDTIME
  13. LORAZEPAM. [Concomitant]
     Active Substance: LORAZEPAM
     Indication: ANXIETY
     Route: 030
  14. NAPROXEN. [Concomitant]
     Active Substance: NAPROXEN
     Indication: PAIN
  15. DIVALPROEX [Concomitant]
     Active Substance: DIVALPROEX SODIUM
  16. LITHIUM. [Concomitant]
     Active Substance: LITHIUM
     Dosage: 300 MG DAILY AND 600 MG AT BEDTIME
  17. LITHIUM. [Concomitant]
     Active Substance: LITHIUM
     Indication: AFFECTIVE DISORDER

REACTIONS (1)
  - Delirium [Recovering/Resolving]
